FAERS Safety Report 5220283-8 (Version None)
Quarter: 2006Q4

REPORT INFORMATION
  Report Type: 
  Country: None (occurrence: None)
  Receive Date: 20061201
  Receipt Date: 20060713
  Transmission Date: 20070319
  Serious: No
  Sender: FDA-Public Use
  Company Number: 2006PV017498

PATIENT
  Age: 34 Year
  Sex: Male

DRUGS (2)
  1. BYETTA [Suspect]
     Indication: DIABETES MELLITUS
     Dosage: 10 MCG;BID;SC
     Route: 058
     Dates: start: 20060706
  2. BYETTA [Suspect]
     Indication: WEIGHT DECREASED
     Dosage: 10 MCG;BID;SC
     Route: 058
     Dates: start: 20060706

REACTIONS (7)
  - CONDITION AGGRAVATED [None]
  - DECREASED APPETITE [None]
  - DRY MOUTH [None]
  - DYSGEUSIA [None]
  - HEADACHE [None]
  - INITIAL INSOMNIA [None]
  - WEIGHT DECREASED [None]
